FAERS Safety Report 6985861-4 (Version None)
Quarter: 2010Q3

REPORT INFORMATION
  Report Type: 
  Country: None (occurrence: None)
  Receive Date: 20100915
  Receipt Date: 20100903
  Transmission Date: 20110219
  Serious: Yes (Hospitalization, Other)
  Sender: FDA-Public Use
  Company Number: FR-WYE-G01573108

PATIENT
  Sex: Female

DRUGS (9)
  1. EFFEXOR XR [Suspect]
     Dosage: OVERDOSE AMOUNT WAS 30 CAPSULES (DOSAGE STRENGTH UNKNOWN)
     Route: 048
     Dates: start: 20080521, end: 20080521
  2. EFFEXOR XR [Suspect]
     Dosage: OVERDOSE AMOUNT WAS 2250 MG (30 CAPSULES OF 75 MG)
     Route: 048
     Dates: start: 20080819, end: 20080819
  3. EFFEXOR XR [Suspect]
     Dosage: OVERDOSE AMOUNT WAS UNKNOWN
     Route: 048
     Dates: start: 20100701, end: 20100701
  4. TERCIAN [Suspect]
     Dosage: 75 MG TOTAL DAILY
     Route: 048
     Dates: end: 20081220
  5. TEMESTA [Suspect]
     Dosage: UNKNOWN
     Route: 048
     Dates: end: 20090301
  6. TEMESTA [Suspect]
     Dosage: 3 MG TOTAL DAILY
     Route: 048
     Dates: start: 20090101, end: 20100101
  7. TEMESTA [Suspect]
     Dosage: 2 BOXES, AS A SUM TOTAL OF 60 TABLETS (STRENGTH UNSPECIFIED (1 OR 2.5 MG))
     Route: 048
     Dates: start: 20100330, end: 20100330
  8. TEMESTA [Suspect]
     Dosage: OVERDOSE AMOUNT WAS UNKNOWN
     Route: 048
     Dates: start: 20100701, end: 20100701
  9. LYSANXIA [Concomitant]
     Indication: ANXIETY
     Dosage: UNKNOWN

REACTIONS (25)
  - ALOPECIA [None]
  - AMNESIA [None]
  - ANXIETY [None]
  - ASTHENIA [None]
  - CONDITION AGGRAVATED [None]
  - CRYING [None]
  - DRUG INEFFECTIVE [None]
  - DRUG WITHDRAWAL SYNDROME [None]
  - DYSKINESIA [None]
  - DYSPNOEA [None]
  - DYSSTASIA [None]
  - FATIGUE [None]
  - HAIR TEXTURE ABNORMAL [None]
  - HYPERSOMNIA [None]
  - INSOMNIA [None]
  - INTENTIONAL OVERDOSE [None]
  - MALAISE [None]
  - MUSCULAR WEAKNESS [None]
  - MUSCULOSKELETAL CHEST PAIN [None]
  - PARAESTHESIA [None]
  - PRESYNCOPE [None]
  - SOMNOLENCE [None]
  - SUICIDAL IDEATION [None]
  - SUICIDE ATTEMPT [None]
  - VERTIGO [None]
